FAERS Safety Report 5103995-6 (Version None)
Quarter: 2006Q3

REPORT INFORMATION
  Report Type: 
  Country: None (occurrence: None)
  Receive Date: 20060911
  Receipt Date: 20060825
  Transmission Date: 20061208
  Serious: Yes (Hospitalization, Other)
  Sender: FDA-Public Use
  Company Number: GB200608006170

PATIENT
  Age: 69 Year
  Sex: 0

DRUGS (4)
  1. FLUOXETINE [Suspect]
     Indication: DEPRESSION
     Dosage: 20 MG, ORAL
     Route: 048
     Dates: start: 20060410, end: 20060415
  2. MOVICOL (MACROGOL, POTASSIUM CHLORIDE, SODIU BICARBONATE, SODIUM CHLOR [Concomitant]
  3. SIMVASTATIN [Concomitant]
  4. XALACOM (LATANOPROST, TIMOLOL MALEATE) [Concomitant]

REACTIONS (5)
  - BLOOD CREATINE PHOSPHOKINASE INCREASED [None]
  - DEPRESSED LEVEL OF CONSCIOUSNESS [None]
  - GENERAL PHYSICAL HEALTH DETERIORATION [None]
  - HYPONATRAEMIA [None]
  - VOMITING [None]
